FAERS Safety Report 18113370 (Version 3)
Quarter: 2020Q4

REPORT INFORMATION
  Report Type: Spontaneous
  Country: US (occurrence: US)
  Receive Date: 20200805
  Receipt Date: 20201028
  Transmission Date: 20210113
  Serious: No
  Sender: FDA-Public Use
  Company Number: US-PFIZER INC-2020194860

PATIENT
  Age: 41 Year
  Sex: Male

DRUGS (4)
  1. LYRICA [Suspect]
     Active Substance: PREGABALIN
     Dosage: TAKING ONE HUNDRED AND FIFTY, THREE TIMES A DAY
  2. LYRICA [Suspect]
     Active Substance: PREGABALIN
     Dosage: 300 MG, DAILY
  3. LYRICA [Suspect]
     Active Substance: PREGABALIN
     Dosage: 1 DF, DAILY (ONE PILL IN THE MORNING)
  4. LYRICA [Suspect]
     Active Substance: PREGABALIN
     Dosage: THREE 150 MG CAPSULES

REACTIONS (3)
  - Therapeutic response shortened [Unknown]
  - Peripheral swelling [Unknown]
  - Neuralgia [Unknown]

NARRATIVE: CASE EVENT DATE: 2020
